FAERS Safety Report 8727622 (Version 2)
Quarter: 2013Q4

REPORT INFORMATION
  Report Type: Spontaneous
  Country: US (occurrence: US)
  Receive Date: 20120816
  Receipt Date: 20131206
  Transmission Date: 20140711
  Serious: No
  Sender: FDA-Public Use
  Company Number: US-ASTRAZENECA-2012SE56665

PATIENT
  Age: 63 Year
  Sex: Female
  Weight: 81.6 kg

DRUGS (6)
  1. SYMBICORT PMDI [Suspect]
     Indication: ASTHMA
     Dosage: 160 MCG/4.5 MCG, UNKNOWN
     Route: 055
     Dates: start: 2011
  2. SYMBICORT PMDI [Suspect]
     Indication: ASTHMA
     Dosage: UNKNOWN
     Route: 055
  3. SIMVASTATIN [Concomitant]
  4. ALLEGRA [Concomitant]
  5. BRIMONIDINE [Concomitant]
  6. FLUTICAZONE [Concomitant]

REACTIONS (4)
  - Malaise [Unknown]
  - Weight increased [Unknown]
  - Oral fungal infection [Unknown]
  - Wrong technique in drug usage process [Unknown]
